FAERS Safety Report 8509158-6 (Version None)
Quarter: 2012Q3

REPORT INFORMATION
  Report Type: 
  Country: None (occurrence: None)
  Receive Date: 20120713
  Receipt Date: 20120710
  Transmission Date: 20120928
  Serious: Yes (Death, Hospitalization)
  Sender: FDA-Public Use
  Company Number: GB-GLAXOSMITHKLINE-B0813847A

PATIENT
  Age: 27 Year
  Sex: Male

DRUGS (4)
  1. ESCITALOPRAM [Concomitant]
     Dosage: 20MG PER DAY
  2. MIRTAZAPINE [Concomitant]
     Dosage: 30MG AT NIGHT
  3. ZYBAN [Suspect]
     Indication: DEPRESSION
     Route: 048
  4. ZYBAN [Suspect]
     Dosage: 3000MG SEE DOSAGE TEXT
     Route: 048
     Dates: start: 20120601, end: 20120601

REACTIONS (4)
  - DRUG ABUSE [None]
  - DEATH [None]
  - CONVULSION [None]
  - OVERDOSE [None]
